FAERS Safety Report 19129056 (Version 5)
Quarter: 2022Q3

REPORT INFORMATION
  Report Type: Spontaneous
  Country: US (occurrence: US)
  Receive Date: 20210413
  Receipt Date: 20220714
  Transmission Date: 20221027
  Serious: No
  Sender: FDA-Public Use
  Company Number: US-SA-SAC20210407000875

PATIENT
  Age: 47 Year
  Sex: Female

DRUGS (15)
  1. DUPIXENT [Suspect]
     Active Substance: DUPILUMAB
     Indication: Psoriasis
     Dosage: 300 MG, QOW
     Route: 058
     Dates: start: 20210402
  2. DUPIXENT [Suspect]
     Active Substance: DUPILUMAB
     Indication: Dermatitis atopic
  3. DUPIXENT [Suspect]
     Active Substance: DUPILUMAB
     Indication: Psoriasis
     Dosage: 300 MG, QOW
     Route: 058
  4. DUPIXENT [Suspect]
     Active Substance: DUPILUMAB
     Indication: Dermatitis atopic
  5. DYMISTA [Concomitant]
     Active Substance: AZELASTINE HYDROCHLORIDE\FLUTICASONE PROPIONATE
  6. VITAMIN D NOS [Concomitant]
     Active Substance: VITAMIN D NOS
  7. CLOBETASOL [Concomitant]
     Active Substance: CLOBETASOL
  8. DOK [Concomitant]
     Active Substance: DOCUSATE SODIUM
  9. DOK [Concomitant]
     Active Substance: DOCUSATE SODIUM
     Dosage: UNK
  10. TRULANCE [Concomitant]
     Active Substance: PLECANATIDE
  11. JOLESSA [Concomitant]
     Active Substance: ETHINYL ESTRADIOL\LEVONORGESTREL
  12. D3 MAX [Concomitant]
  13. AZELASTINE [Concomitant]
     Active Substance: AZELASTINE
  14. LUBIPROSTONE [Concomitant]
     Active Substance: LUBIPROSTONE
  15. AZELASTINE HYDROCHLORIDE\FLUTICASONE PROPIONATE [Concomitant]
     Active Substance: AZELASTINE HYDROCHLORIDE\FLUTICASONE PROPIONATE

REACTIONS (6)
  - Psoriasis [Not Recovered/Not Resolved]
  - Chest discomfort [Unknown]
  - Oropharyngeal discomfort [Unknown]
  - Injection site pain [Unknown]
  - Injection site mass [Unknown]
  - Product use in unapproved indication [Unknown]

NARRATIVE: CASE EVENT DATE: 20210402
